FAERS Safety Report 9662777 (Version 2)
Quarter: 2013Q4

REPORT INFORMATION
  Report Type: Spontaneous
  Country: US (occurrence: US)
  Receive Date: 20131031
  Receipt Date: 20131031
  Transmission Date: 20140711
  Serious: No
  Sender: FDA-Public Use
  Company Number: US-PURDUE-USA-2011-0062404

PATIENT
  Age: 37 Year
  Sex: Female
  Weight: 101.13 kg

DRUGS (4)
  1. OXYCONTIN (NDA 22-272) [Suspect]
     Indication: PAIN
     Dosage: 80 MG, TID
  2. OXYCONTIN (NDA 22-272) [Suspect]
     Dosage: 40 MG, TID
  3. PROVIGIL [Concomitant]
     Dosage: 200 MG, DAILY
  4. DYAZIDE [Concomitant]
     Dosage: 37.5 MG, UNK

REACTIONS (8)
  - Influenza like illness [Unknown]
  - Pain [Recovered/Resolved]
  - Drug effect decreased [Unknown]
  - Dyspepsia [Unknown]
  - Nausea [Unknown]
  - Anxiety [Recovered/Resolved]
  - Mood swings [Recovered/Resolved]
  - Confusional state [Recovered/Resolved]
